FAERS Safety Report 16658888 (Version 1)
Quarter: 2019Q3

REPORT INFORMATION
  Report Type: Spontaneous
  Country: DE (occurrence: DE)
  Receive Date: 20190801
  Receipt Date: 20190801
  Transmission Date: 20191004
  Serious: Yes (Other)
  Sender: FDA-Public Use
  Company Number: DE-ARRAY-2019-06065

PATIENT

DRUGS (3)
  1. NIVOLUMAB [Concomitant]
     Active Substance: NIVOLUMAB
     Indication: MALIGNANT MELANOMA
     Dosage: 240 MG, Q2WK
     Route: 042
     Dates: start: 201810
  2. BRAFTOVI [Suspect]
     Active Substance: ENCORAFENIB
     Indication: PRODUCT USED FOR UNKNOWN INDICATION
     Dosage: UNK
     Route: 048
  3. MEKTOVI [Suspect]
     Active Substance: BINIMETINIB
     Indication: PRODUCT USED FOR UNKNOWN INDICATION
     Dosage: UNK
     Route: 048

REACTIONS (17)
  - Arthritis [Recovering/Resolving]
  - Lymphadenopathy mediastinal [Unknown]
  - Burning sensation [Unknown]
  - Bronchitis chronic [Not Recovered/Not Resolved]
  - Pain of skin [Unknown]
  - Pneumonitis [Unknown]
  - Gamma-glutamyltransferase increased [Recovering/Resolving]
  - Nasal dryness [Unknown]
  - Fatigue [Unknown]
  - Oedema [Unknown]
  - Rash maculo-papular [Not Recovered/Not Resolved]
  - Decreased appetite [Recovered/Resolved]
  - Erythema [Not Recovered/Not Resolved]
  - Pruritus [Unknown]
  - Haemorrhage [Unknown]
  - Oropharyngeal pain [Recovered/Resolved]
  - Hypoaesthesia [Unknown]

NARRATIVE: CASE EVENT DATE: 20181025
